FAERS Safety Report 17410203 (Version 2)
Quarter: 2020Q2

REPORT INFORMATION
  Report Type: Spontaneous
  Country: US (occurrence: US)
  Receive Date: 20200212
  Receipt Date: 20200626
  Transmission Date: 20200713
  Serious: No
  Sender: FDA-Public Use
  Company Number: US-SA-2020SA037150

PATIENT

DRUGS (4)
  1. METOPROLOL. [Concomitant]
     Active Substance: METOPROLOL
     Indication: BLOOD PRESSURE MEASUREMENT
  2. PLAVIX [Suspect]
     Active Substance: CLOPIDOGREL BISULFATE
     Dosage: 75 MG, BID
  3. LEVOTHYROXINE. [Concomitant]
     Active Substance: LEVOTHYROXINE
     Indication: THYROID DISORDER
  4. ELIQUIS [Suspect]
     Active Substance: APIXABAN
     Indication: HEART VALVE REPLACEMENT
     Dosage: 2.5 MG
     Route: 048
     Dates: start: 201909

REACTIONS (6)
  - Procedural pain [Unknown]
  - Haemorrhage [Unknown]
  - Contusion [Unknown]
  - Gait disturbance [Unknown]
  - Abdominal pain [Unknown]
  - Myalgia [Unknown]
